FAERS Safety Report 5360113-7 (Version None)
Quarter: 2007Q2

REPORT INFORMATION
  Report Type: 
  Country: None (occurrence: None)
  Receive Date: 20070612
  Receipt Date: 20070606
  Transmission Date: 20071010
  Serious: Yes (Hospitalization)
  Sender: FDA-Public Use
  Company Number: 200701IM000006

PATIENT
  Age: 63 Year
  Sex: Female
  Weight: 57.6975 kg

DRUGS (13)
  1. INTERFERON GAMMA-1B [Suspect]
     Indication: IDIOPATHIC PULMONARY FIBROSIS
     Dosage: 200 UG, TIW, SUBCUTANEOUS
     Route: 058
     Dates: start: 20050425
  2. VITAMIN CAP [Concomitant]
  3. AUGMENTIN '125' [Concomitant]
  4. BENADRYL [Concomitant]
  5. ELESTOL [Concomitant]
  6. PATANOL [Concomitant]
  7. GLUCOSAMINE [Concomitant]
  8. PREMARIN [Concomitant]
  9. ADVAIR DISKUS 100/50 [Concomitant]
  10. SINUVENT [Concomitant]
  11. ASCORBIC ACID [Concomitant]
  12. ACETAMINOPHEN [Concomitant]
  13. ALEVE [Concomitant]

REACTIONS (8)
  - ANXIETY [None]
  - ARTHRALGIA [None]
  - CEREBROVASCULAR ACCIDENT [None]
  - INTERVERTEBRAL DISC DISORDER [None]
  - MUSCULOSKELETAL PAIN [None]
  - PERONEAL NERVE PALSY [None]
  - SPINAL COLUMN STENOSIS [None]
  - SPONDYLOLISTHESIS [None]
